FAERS Safety Report 12785097 (Version 3)
Quarter: 2016Q4

REPORT INFORMATION
  Report Type: Report from Study
  Country: None (occurrence: TW)
  Receive Date: 20160927
  Receipt Date: 20161028
  Transmission Date: 20170207
  Serious: Yes (Hospitalization, Other)
  Sender: FDA-Public Use
  Company Number: TW-ABBVIE-16K-153-1739186-00

PATIENT
  Age: 71 Year
  Sex: Female
  Weight: 41 kg

DRUGS (2)
  1. PREDNISOLONE. [Concomitant]
     Active Substance: PREDNISOLONE
     Indication: CROHN^S DISEASE
     Route: 048
     Dates: start: 20160816, end: 20160925
  2. HUMIRA [Suspect]
     Active Substance: ADALIMUMAB
     Indication: CROHN^S DISEASE
     Route: 058
     Dates: start: 20160816, end: 20160913

REACTIONS (26)
  - Pneumoperitoneum [Unknown]
  - Osteoarthritis [Unknown]
  - Pleural effusion [Unknown]
  - Lymphocyte count decreased [Unknown]
  - Eosinophil count decreased [Unknown]
  - Shock [Unknown]
  - Ileus [Unknown]
  - Fat tissue increased [Unknown]
  - Peritonitis [Recovering/Resolving]
  - Hypotension [Unknown]
  - Abdominal pain [Recovering/Resolving]
  - Gastrointestinal perforation [Unknown]
  - Hydronephrosis [Unknown]
  - Hyperaemia [Unknown]
  - Atelectasis [Unknown]
  - Ascites [Unknown]
  - Spondylitis [Unknown]
  - Scoliosis [Unknown]
  - Haemoglobin decreased [Unknown]
  - Gastrooesophageal sphincter insufficiency [Unknown]
  - Gastrointestinal wall thickening [Unknown]
  - Pulmonary mass [Unknown]
  - Neutrophil count increased [Unknown]
  - Intestinal perforation [Recovering/Resolving]
  - Intra-abdominal fluid collection [Unknown]
  - Gastritis [Unknown]

NARRATIVE: CASE EVENT DATE: 2016
